FAERS Safety Report 4720516-8 (Version None)
Quarter: 2005Q3

REPORT INFORMATION
  Report Type: 
  Country: None (occurrence: None)
  Receive Date: 20050721
  Receipt Date: 20050422
  Transmission Date: 20060218
  Serious: No
  Sender: FDA-Public Use
  Company Number: US-BRISTOL-MYERS SQUIBB COMPANY-12945002

PATIENT
  Age: 50 Year
  Sex: Male
  Weight: 68 kg

DRUGS (3)
  1. GLYBURIDE + METFORMIN HCL TABS [Suspect]
     Indication: DIABETES MELLITUS
     Dosage: 5MG/500MG: ONE TABLET IN THE AM AND ONE TABLET IN THE PM.
  2. LISINOPRIL [Concomitant]
  3. TAZTIA TABS 360 MG [Concomitant]

REACTIONS (1)
  - BLOOD GLUCOSE FLUCTUATION [None]
